FAERS Safety Report 8943218 (Version 1)
Quarter: 2012Q4

REPORT INFORMATION
  Report Type: 
  Country: CA (occurrence: CA)
  Receive Date: 20121204
  Receipt Date: 20121204
  Transmission Date: 20130627
  Serious: Yes (Hospitalization)
  Sender: FDA-Public Use
  Company Number: CA-009507513-1211CAN012516

PATIENT
  Age: 50 Year
  Sex: Male
  Weight: 76.7 kg

DRUGS (12)
  1. TEMOZOLOMIDE [Suspect]
     Indication: GLIOBLASTOMA
     Dosage: 75 mg/kg,dosage form :pill, 145 mg every day
     Route: 048
     Dates: start: 20091216, end: 20100125
  2. TEMOZOLOMIDE [Suspect]
     Dosage: dosage form pill
     Route: 048
     Dates: start: 20100129
  3. STUDY DRUG (UNSPECIFIED) [Suspect]
     Indication: GLIOBLASTOMA
     Dosage: 10 mg/kg, (q2s) every 2 weekly
     Route: 042
     Dates: start: 20091216
  4. STUDY DRUG (UNSPECIFIED) [Suspect]
     Indication: GLIOBLASTOMA
  5. DILANTIN [Concomitant]
     Dosage: 350 mg, UNK
     Dates: start: 20090924
  6. DEXAMETHASONE [Concomitant]
     Dosage: 4 mg, UNK
     Dates: start: 20091113
  7. ONDANSETRON [Concomitant]
     Dosage: 8 mg, UNK
     Dates: start: 20091216
  8. PROCHLORPERAZINE [Concomitant]
     Dosage: UNK
     Dates: start: 20100108, end: 20100122
  9. PERIACTIN [Concomitant]
     Dosage: 6 mg, UNK
     Dates: start: 20100114, end: 20100121
  10. VITAMINS (UNSPECIFIED) [Concomitant]
     Dosage: 1 UNK, UNK
     Dates: start: 20091216
  11. POLYSPORIN (BACITRACIN ZINC (+) POLYMYXIN B SULFATE) [Concomitant]
     Dosage: UNK
     Dates: start: 20100115
  12. STEMETIL [Concomitant]
     Dosage: 10 mg, UNK
     Dates: start: 20100123

REACTIONS (1)
  - Pneumonia [Recovered/Resolved]
